FAERS Safety Report 7955849 (Version 2)
Quarter: 2014Q1

REPORT INFORMATION
  Report Type: Spontaneous
  Country: BE (occurrence: BE)
  Receive Date: 20110523
  Receipt Date: 20140121
  Transmission Date: 20141002
  Serious: Yes (Hospitalization)
  Sender: FDA-Public Use
  Company Number: PHHY2011BE41807

PATIENT
  Age: 80 Year
  Sex: Male

DRUGS (8)
  1. FUROSEMIDE [Suspect]
     Dosage: 40 MG
  2. LITHIUM [Interacting]
     Indication: BIPOLAR DISORDER
     Dosage: 250 MG, TID
  3. OLANZAPINE [Concomitant]
     Dosage: 5 MG, QD
  4. CETIRIZINE [Concomitant]
     Dosage: 10 MG, UNK
  5. MACROGOL [Concomitant]
  6. BISOPROLOL [Concomitant]
  7. FELODIPINE [Concomitant]
     Dosage: 10 MG, UNK
  8. TERAZOSIN [Concomitant]
     Dosage: 5 MG, UNK

REACTIONS (14)
  - Nephrogenic diabetes insipidus [Recovered/Resolved]
  - Dehydration [Recovered/Resolved]
  - Renal failure [Recovered/Resolved]
  - Myoclonus [Recovered/Resolved]
  - Campylobacter gastroenteritis [Recovered/Resolved]
  - Abdominal distension [Recovered/Resolved]
  - Diarrhoea [Recovered/Resolved]
  - Pyrexia [Recovered/Resolved]
  - Somnolence [Recovered/Resolved]
  - Toxicity to various agents [Unknown]
  - Tongue dry [Recovered/Resolved]
  - Dry skin [Unknown]
  - Hypernatraemia [Unknown]
  - Drug interaction [Unknown]
